FAERS Safety Report 12676579 (Version 1)
Quarter: 2016Q3

REPORT INFORMATION
  Report Type: Spontaneous
  Country: US (occurrence: None)
  Receive Date: 20160822
  Receipt Date: 20160822
  Transmission Date: 20161109
  Serious: Yes (Life-Threatening, Hospitalization)
  Sender: FDA-Public Use
  Company Number: None

PATIENT
  Age: 22 Year
  Sex: Female
  Weight: 114.31 kg

DRUGS (2)
  1. JUNEL 1.5/30 [Suspect]
     Active Substance: ETHINYL ESTRADIOL\NORETHINDRONE ACETATE
  2. SPRINTEC [Suspect]
     Active Substance: ETHINYL ESTRADIOL\NORGESTIMATE
     Indication: DEEP VEIN THROMBOSIS
     Route: 048
     Dates: start: 20160205, end: 20160414

REACTIONS (5)
  - Dyspareunia [None]
  - Deep vein thrombosis [None]
  - Dysmenorrhoea [None]
  - Menorrhagia [None]
  - Muscle spasms [None]

NARRATIVE: CASE EVENT DATE: 20160413
